FAERS Safety Report 19747884 (Version 1)
Quarter: 2021Q3

REPORT INFORMATION
  Report Type: Spontaneous
  Country: US (occurrence: US)
  Receive Date: 20210825
  Receipt Date: 20210825
  Transmission Date: 20211014
  Serious: No
  Sender: FDA-Public Use
  Company Number: US-SAGENT PHARMACEUTICALS-2020SAG002576

PATIENT
  Age: 53 Year
  Sex: Female

DRUGS (4)
  1. HEPARIN SODIUM. [Suspect]
     Active Substance: HEPARIN SODIUM
     Indication: PROPHYLAXIS
     Dosage: 5000 U, UNK
     Route: 042
     Dates: start: 20201125, end: 20201125
  2. WARFARIN [Concomitant]
     Active Substance: WARFARIN
  3. HEPARIN SODIUM. [Suspect]
     Active Substance: HEPARIN SODIUM
     Dosage: 3000 U, UNK
     Route: 042
     Dates: start: 20201125, end: 20201125
  4. HEPARIN SODIUM. [Suspect]
     Active Substance: HEPARIN SODIUM
     Dosage: 2000 U, UNK
     Route: 042
     Dates: start: 20201125, end: 20201125

REACTIONS (2)
  - Atrial thrombosis [Recovered/Resolved]
  - Therapeutic product effect decreased [Unknown]

NARRATIVE: CASE EVENT DATE: 20201125
